FAERS Safety Report 9919687 (Version 2)
Quarter: 2014Q2

REPORT INFORMATION
  Report Type: Spontaneous
  Country: IT (occurrence: IT)
  Receive Date: 20140224
  Receipt Date: 20140525
  Transmission Date: 20141212
  Serious: Yes (Hospitalization)
  Sender: FDA-Public Use
  Company Number: IT-BRISTOL-MYERS SQUIBB COMPANY-20210589

PATIENT
  Age: 80 Year
  Sex: Male

DRUGS (1)
  1. COUMADIN TABS 5 MG [Suspect]
     Indication: ATRIAL FIBRILLATION
     Dosage: INTERRUPTED ON 02JAN14
     Route: 048
     Dates: start: 20140102

REACTIONS (3)
  - Gastritis erosive [Recovering/Resolving]
  - Abdominal wall haematoma [Recovering/Resolving]
  - Anaemia [Recovering/Resolving]
